FAERS Safety Report 7809758-2 (Version None)
Quarter: 2011Q4

REPORT INFORMATION
  Report Type: 
  Country: None (occurrence: None)
  Receive Date: 20111012
  Receipt Date: 20111004
  Transmission Date: 20120403
  Serious: Yes (Other)
  Sender: FDA-Public Use
  Company Number: PHHY2011DE64240

PATIENT
  Sex: Female

DRUGS (2)
  1. CLOZAPINE [Suspect]
     Dosage: 2 DF, QD
  2. IMIPRAMINE [Concomitant]
     Dosage: UNK UKN, UNK

REACTIONS (6)
  - BLOOD PRESSURE DECREASED [None]
  - SALIVARY HYPERSECRETION [None]
  - POLYNEUROPATHY [None]
  - CONSTIPATION [None]
  - SKIN REACTION [None]
  - SOMNOLENCE [None]
